FAERS Safety Report 14616534 (Version 3)
Quarter: 2018Q4

REPORT INFORMATION
  Report Type: Spontaneous
  Country: IT (occurrence: IT)
  Receive Date: 20180309
  Receipt Date: 20181226
  Transmission Date: 20190204
  Serious: Yes (Other)
  Sender: FDA-Public Use
  Company Number: IT-ACCORD-064253

PATIENT
  Age: 59 Year
  Sex: Female
  Weight: 59 kg

DRUGS (2)
  1. GEMCITABINE/GEMCITABINE HYDROCHLORIDE [Suspect]
     Active Substance: GEMCITABINE\GEMCITABINE HYDROCHLORIDE
     Indication: PANCREATIC CARCINOMA RECURRENT
     Dosage: I CYCLE,  SIXTH CYCLE??LAST ADMINISTRATION ON 29-JAN-2018
     Route: 042
     Dates: start: 20170916
  2. PACLITAXEL/PACLITAXEL LIPOSOME [Suspect]
     Active Substance: PACLITAXEL
     Indication: PANCREATIC CARCINOMA RECURRENT
     Dosage: 1 CYCLES, 6 CYCLE??LAST ADMINISTRATION ON 29-JAN-2018
     Route: 042
     Dates: start: 20170916, end: 20180127

REACTIONS (3)
  - Neurotoxicity [Not Recovered/Not Resolved]
  - Off label use [Unknown]
  - Dyspepsia [Recovering/Resolving]

NARRATIVE: CASE EVENT DATE: 20170926
